FAERS Safety Report 5918756-5 (Version None)
Quarter: 2008Q4

REPORT INFORMATION
  Report Type: 
  Country: None (occurrence: None)
  Receive Date: 20081015
  Receipt Date: 20080724
  Transmission Date: 20090506
  Serious: No
  Sender: FDA-Public Use
  Company Number: US-ASTRAZENECA-2008UW15389

PATIENT
  Sex: Female

DRUGS (1)
  1. SYMBICORT [Suspect]
     Indication: DYSPNOEA
     Dosage: 160/4.5 MCG
     Route: 055
     Dates: start: 20070101, end: 20080501

REACTIONS (3)
  - CANDIDIASIS [None]
  - OESOPHAGEAL INFECTION [None]
  - VOMITING [None]
